FAERS Safety Report 21347549 (Version 4)
Quarter: 2023Q1

REPORT INFORMATION
  Report Type: Spontaneous
  Country: HU (occurrence: HU)
  Receive Date: 20220919
  Receipt Date: 20230106
  Transmission Date: 20230418
  Serious: Yes (Hospitalization, Other)
  Sender: FDA-Public Use
  Company Number: None

PATIENT
  Age: 39 Year
  Sex: Male
  Weight: 103 kg

DRUGS (5)
  1. SAXENDA [Suspect]
     Active Substance: LIRAGLUTIDE
     Indication: Obesity
     Dosage: 0.6 ML, QD
     Route: 058
     Dates: start: 20220828, end: 20220903
  2. SAXENDA [Suspect]
     Active Substance: LIRAGLUTIDE
     Indication: Blood glucose increased
     Dosage: 1.2 ML, QD
     Route: 058
     Dates: start: 20220904, end: 20220907
  3. SAXENDA [Suspect]
     Active Substance: LIRAGLUTIDE
     Indication: Body mass index increased
  4. FELODIPINE [Concomitant]
     Active Substance: FELODIPINE
     Indication: Hypertension
     Dosage: 5 MG, QD
     Dates: start: 20170101, end: 20220907
  5. ROZUVA TEVA [Concomitant]
     Indication: Hypercholesterolaemia
     Dosage: 10 MG, QD
     Dates: start: 20220101, end: 20220907

REACTIONS (3)
  - Purpura [Not Recovered/Not Resolved]
  - Eyelid oedema [Not Recovered/Not Resolved]
  - Acute kidney injury [Recovered/Resolved]

NARRATIVE: CASE EVENT DATE: 20220905
